FAERS Safety Report 18455371 (Version 2)
Quarter: 2020Q4

REPORT INFORMATION
  Report Type: Spontaneous
  Country: ZA (occurrence: ZA)
  Receive Date: 20201103
  Receipt Date: 20201117
  Transmission Date: 20210114
  Serious: Yes (Other)
  Sender: FDA-Public Use
  Company Number: ZA-EMD SERONO-9194921

PATIENT
  Sex: Female

DRUGS (5)
  1. CETROTIDE [Concomitant]
     Active Substance: CETRORELIX ACETATE
     Indication: HYPOTHALAMO-PITUITARY DISORDER
  2. MENOPUR [Concomitant]
     Active Substance: FOLLITROPIN\LUTEINIZING HORMONE
     Indication: HYPOTHALAMO-PITUITARY DISORDER
  3. OVITRELLE [Suspect]
     Active Substance: CHORIOGONADOTROPIN ALFA
     Indication: OVULATION INDUCTION
     Route: 058
     Dates: start: 20201019, end: 20201019
  4. CETROTIDE [Concomitant]
     Active Substance: CETRORELIX ACETATE
     Indication: OVULATION INDUCTION
  5. MENOPUR [Concomitant]
     Active Substance: FOLLITROPIN\LUTEINIZING HORMONE
     Indication: OVULATION INDUCTION

REACTIONS (9)
  - Injection site paraesthesia [Recovered/Resolved]
  - Respiratory rate increased [Unknown]
  - Dizziness [Not Recovered/Not Resolved]
  - Injection site haemorrhage [Unknown]
  - Hypotension [Unknown]
  - Gastrointestinal infection [Unknown]
  - Wrong technique in product usage process [Unknown]
  - Loss of consciousness [Recovered/Resolved]
  - Headache [Not Recovered/Not Resolved]

NARRATIVE: CASE EVENT DATE: 2020
